FAERS Safety Report 11044465 (Version 2)
Quarter: 2015Q4

REPORT INFORMATION
  Report Type: Spontaneous
  Country: US (occurrence: US)
  Receive Date: 20150417
  Receipt Date: 20151110
  Transmission Date: 20160304
  Serious: Yes (Other)
  Sender: FDA-Public Use
  Company Number: US-BAYER-2015-137314

PATIENT
  Age: 20 Year
  Sex: Female

DRUGS (1)
  1. MIRENA [Suspect]
     Active Substance: LEVONORGESTREL
     Dosage: 20 MCG/24HR, CONT
     Route: 015
     Dates: start: 20100622

REACTIONS (6)
  - Emotional distress [None]
  - Uterine perforation [None]
  - Drug ineffective [None]
  - Pregnancy with contraceptive device [None]
  - Injury [None]
  - Pain [None]

NARRATIVE: CASE EVENT DATE: 20120410
